FAERS Safety Report 22588062 (Version 3)
Quarter: 2023Q2

REPORT INFORMATION
  Report Type: Report from Study
  Country: CA (occurrence: CA)
  Receive Date: 20230612
  Receipt Date: 20230615
  Transmission Date: 20230721
  Serious: Yes (Hospitalization, Other)
  Sender: FDA-Public Use
  Company Number: CA-JNJFOC-20230424032

PATIENT
  Age: 47 Year
  Sex: Female
  Weight: 64 kg

DRUGS (2)
  1. STELARA [Suspect]
     Active Substance: USTEKINUMAB
     Indication: Colitis ulcerative
     Dosage: LAST DOSE ADMINISTERED ON 11-APR-2023
     Route: 058
     Dates: start: 20220908
  2. STELARA [Suspect]
     Active Substance: USTEKINUMAB

REACTIONS (9)
  - Postoperative abscess [Recovered/Resolved]
  - Pancreatitis [Unknown]
  - Stoma complication [Unknown]
  - Proctocolectomy [Recovering/Resolving]
  - Colitis ulcerative [Not Recovered/Not Resolved]
  - Post procedural infection [Recovered/Resolved]
  - Weight decreased [Unknown]
  - Obstruction [Unknown]
  - Drug ineffective [Unknown]

NARRATIVE: CASE EVENT DATE: 20230401
